FAERS Safety Report 14848175 (Version 3)
Quarter: 2018Q4

REPORT INFORMATION
  Report Type: Spontaneous
  Country: US (occurrence: US)
  Receive Date: 20180504
  Receipt Date: 20181005
  Transmission Date: 20190204
  Serious: No
  Sender: FDA-Public Use
  Company Number: US-PFIZER INC-2018121682

PATIENT
  Age: 67 Year
  Sex: Female

DRUGS (5)
  1. NEOSAR [Concomitant]
     Active Substance: CYCLOPHOSPHAMIDE
     Indication: CHEMOTHERAPY
     Dosage: UNK
  2. DOCETAXEL. [Suspect]
     Active Substance: DOCETAXEL
     Indication: BREAST CANCER FEMALE
     Dosage: 160 MG, CYCLIC, EVERY THREE WEEKS (04 CYCLES)
     Dates: start: 20150414, end: 20150714
  3. TAXOTERE [Suspect]
     Active Substance: DOCETAXEL
     Indication: BREAST CANCER FEMALE
     Dosage: 160 MG, CYCLIC, EVERY THREE WEEKS (04 CYCLES)
     Dates: start: 20150414, end: 20150714
  4. DOCETAXEL. [Suspect]
     Active Substance: DOCETAXEL
     Indication: BREAST CANCER FEMALE
     Dosage: 160 MG, CYCLIC, EVERY THREE WEEKS (04 CYCLES)
     Dates: start: 20150414, end: 20150714
  5. DOCEFREZ [Suspect]
     Active Substance: DOCETAXEL ANHYDROUS
     Indication: BREAST CANCER FEMALE
     Dosage: 160 MG, CYCLIC, EVERY THREE WEEKS (04 CYCLES)
     Dates: start: 20150414, end: 20150714

REACTIONS (1)
  - Alopecia [Not Recovered/Not Resolved]
